FAERS Safety Report 6900150-1 (Version None)
Quarter: 2010Q3

REPORT INFORMATION
  Report Type: 
  Country: None (occurrence: None)
  Receive Date: 20100803
  Receipt Date: 20100726
  Transmission Date: 20110219
  Serious: Yes (Other)
  Sender: FDA-Public Use
  Company Number: US-MYLANLABS-2010S1013363

PATIENT
  Age: 23 Year
  Sex: Female

DRUGS (4)
  1. CLARAVIS [Suspect]
     Indication: ACNE
     Route: 048
     Dates: start: 20100301, end: 20100401
  2. CLARAVIS [Suspect]
     Route: 048
     Dates: start: 20100501, end: 20100601
  3. AMNESTEEM [Suspect]
     Indication: ACNE
     Route: 048
     Dates: start: 20100601, end: 20100718
  4. DROSPIRENONE AND EHTINYL ESTRADIOL [Concomitant]

REACTIONS (2)
  - HEADACHE [None]
  - NECK PAIN [None]
